FAERS Safety Report 9619558 (Version 1)
Quarter: 2013Q4

REPORT INFORMATION
  Report Type: Spontaneous
  Country: US (occurrence: US)
  Receive Date: 20131014
  Receipt Date: 20131014
  Transmission Date: 20140711
  Serious: No
  Sender: FDA-Public Use
  Company Number: US-009507513-1310USA001710

PATIENT
  Sex: Female
  Weight: 81.63 kg

DRUGS (1)
  1. NEXPLANON [Suspect]
     Indication: CONTRACEPTION
     Dosage: UNK
     Route: 059
     Dates: start: 20130929

REACTIONS (4)
  - Implant site pain [Unknown]
  - Implant site swelling [Unknown]
  - Implant site bruising [Unknown]
  - Pain [Unknown]
